FAERS Safety Report 23172002 (Version 1)
Quarter: 2023Q4

REPORT INFORMATION
  Report Type: Spontaneous
  Country: TR (occurrence: TR)
  Receive Date: 20231110
  Receipt Date: 20231110
  Transmission Date: 20240110
  Serious: Yes (Life-Threatening, Disabling, Other)
  Sender: FDA-Public Use
  Company Number: TR-ABBVIE-5490906

PATIENT
  Sex: Male
  Weight: 100 kg

DRUGS (1)
  1. SKYRIZI [Suspect]
     Active Substance: RISANKIZUMAB-RZAA
     Indication: Product used for unknown indication
     Route: 058

REACTIONS (2)
  - Cerebrovascular accident [Recovering/Resolving]
  - Transient ischaemic attack [Recovering/Resolving]
